FAERS Safety Report 18922695 (Version 2)
Quarter: 2021Q1

REPORT INFORMATION
  Report Type: Report from Study
  Country: US (occurrence: US)
  Receive Date: 20210222
  Receipt Date: 20210331
  Transmission Date: 20210420
  Serious: Yes (Death)
  Sender: FDA-Public Use
  Company Number: US-MYLANLABS-2021M1010672

PATIENT
  Age: 17 Year
  Sex: Male
  Weight: 64.85 kg

DRUGS (2)
  1. AMNESTEEM [Suspect]
     Active Substance: ISOTRETINOIN
     Indication: ACNE
     Dosage: 20 MILLIGRAM
  2. AMNESTEEM [Suspect]
     Active Substance: ISOTRETINOIN
     Indication: ACNE
     Dosage: 40 MILLIGRAM, QD (DAILY)

REACTIONS (3)
  - Completed suicide [Fatal]
  - Anxiety [Unknown]
  - Palpitations [Unknown]

NARRATIVE: CASE EVENT DATE: 20210215
